APPROVED DRUG PRODUCT: POTASSIUM CHLORIDE
Active Ingredient: POTASSIUM CHLORIDE
Strength: 8MEQ
Dosage Form/Route: CAPSULE, EXTENDED RELEASE;ORAL
Application: A201944 | Product #001
Applicant: TRIS PHARMA INC
Approved: Mar 4, 2016 | RLD: No | RS: No | Type: DISCN